FAERS Safety Report 11814690 (Version 1)
Quarter: 2015Q4

REPORT INFORMATION
  Report Type: Spontaneous
  Country: US (occurrence: None)
  Receive Date: 20151208
  Receipt Date: 20151208
  Transmission Date: 20160305
  Serious: Yes (Other)
  Sender: FDA-Public Use
  Company Number: None

PATIENT
  Age: 63 Year
  Sex: Female
  Weight: 53.52 kg

DRUGS (13)
  1. DULOXETINE HYDROCHLORIDE. [Suspect]
     Active Substance: DULOXETINE HYDROCHLORIDE
     Indication: PAIN
     Route: 048
     Dates: start: 20150527, end: 20150610
  2. PROGESTERONE. [Concomitant]
     Active Substance: PROGESTERONE
  3. BUROPION HCL XL [Concomitant]
  4. VITAMIN D [Concomitant]
     Active Substance: CHOLECALCIFEROL
  5. DULOXETINE HYDROCHLORIDE. [Suspect]
     Active Substance: DULOXETINE HYDROCHLORIDE
     Indication: MIGRAINE
     Route: 048
     Dates: start: 20150527, end: 20150610
  6. MULTIVITAMIN [Concomitant]
     Active Substance: VITAMINS
  7. RESTASIS [Concomitant]
     Active Substance: CYCLOSPORINE
  8. CLONAZEPAM. [Concomitant]
     Active Substance: CLONAZEPAM
  9. SUMATRIPTAN. [Concomitant]
     Active Substance: SUMATRIPTAN
  10. CALCIUM [Concomitant]
     Active Substance: CALCIUM
  11. FISH OIL [Concomitant]
     Active Substance: FISH OIL
  12. DULOXETINE HYDROCHLORIDE. [Suspect]
     Active Substance: DULOXETINE HYDROCHLORIDE
     Indication: GENERALISED ANXIETY DISORDER
     Route: 048
     Dates: start: 20150527, end: 20150610
  13. ESTROGEN [Concomitant]
     Active Substance: ESTRONE\SUS SCROFA OVARY

REACTIONS (5)
  - Drug withdrawal syndrome [None]
  - General symptom [None]
  - Product substitution issue [None]
  - Drug effect decreased [None]
  - Disease recurrence [None]

NARRATIVE: CASE EVENT DATE: 20150601
